FAERS Safety Report 6945984-2 (Version None)
Quarter: 2010Q3

REPORT INFORMATION
  Report Type: 
  Country: None (occurrence: None)
  Receive Date: 20100824
  Receipt Date: 20100813
  Transmission Date: 20110219
  Serious: Yes (Death)
  Sender: FDA-Public Use
  Company Number: 2010MA001776

PATIENT
  Age: 42 Year
  Sex: Male

DRUGS (9)
  1. CARBAMAZEPINE [Suspect]
     Indication: BIPOLAR DISORDER
  2. OLANZAPINE [Suspect]
     Indication: BIPOLAR DISORDER
  3. ZOPICLONE (ZOPICLONE) [Suspect]
  4. CITALOPRAM (CON.) [Concomitant]
  5. SIMVASTATIN (CON.) [Concomitant]
  6. FEXOFENADINE (CON.) [Concomitant]
  7. LEVOTHYROXINE [Concomitant]
  8. SODIUM (CON.) [Concomitant]
  9. OMEPRAZOLE (CON.) [Concomitant]

REACTIONS (7)
  - ANTICONVULSANT DRUG LEVEL ABOVE THERAPEUTIC [None]
  - ARRHYTHMIA [None]
  - COMA [None]
  - ELECTROCARDIOGRAM QT PROLONGED [None]
  - HEPATIC STEATOSIS [None]
  - LIVER DISORDER [None]
  - SUDDEN DEATH [None]
